FAERS Safety Report 19768907 (Version 1)
Quarter: 2021Q3

REPORT INFORMATION
  Report Type: Spontaneous
  Country: GB (occurrence: GB)
  Receive Date: 20210831
  Receipt Date: 20210831
  Transmission Date: 20211014
  Serious: Yes (Other)
  Sender: FDA-Public Use
  Company Number: GB-DRREDDYS-LIT/UKI/21/0139460

PATIENT
  Age: 71 Year
  Sex: Female

DRUGS (4)
  1. PALBOCICLIB [Suspect]
     Active Substance: PALBOCICLIB
     Indication: HORMONE RECEPTOR POSITIVE HER2 NEGATIVE BREAST CANCER
     Dosage: 25 MG PER DAY FOR 3 WEEKS FOLLOWED BY 1 WEEK OFF
     Route: 048
  2. PALBOCICLIB [Suspect]
     Active Substance: PALBOCICLIB
     Dosage: RESTARTED AT A REDUCED DOSE
     Route: 048
  3. FULVESTRANT. [Suspect]
     Active Substance: FULVESTRANT
     Indication: HORMONE RECEPTOR POSITIVE HER2 NEGATIVE BREAST CANCER
  4. TASELISIB. [Suspect]
     Active Substance: TASELISIB
     Indication: HORMONE RECEPTOR POSITIVE HER2 NEGATIVE BREAST CANCER

REACTIONS (2)
  - Rash erythematous [Recovered/Resolved]
  - Skin exfoliation [Unknown]
